FAERS Safety Report 8271406-8 (Version None)
Quarter: 2012Q2

REPORT INFORMATION
  Report Type: 
  Country: None (occurrence: None)
  Receive Date: 20120410
  Receipt Date: 20120402
  Transmission Date: 20120825
  Serious: Yes (Other)
  Sender: FDA-Public Use
  Company Number: PHEH2012US007147

PATIENT
  Sex: Male

DRUGS (1)
  1. GILENYA [Suspect]

REACTIONS (6)
  - GASTROINTESTINAL DISORDER [None]
  - BALANCE DISORDER [None]
  - ASTHENIA [None]
  - FALL [None]
  - BLADDER DISORDER [None]
  - PRESYNCOPE [None]
